FAERS Safety Report 5237841-7 (Version None)
Quarter: 2007Q1

REPORT INFORMATION
  Report Type: 
  Country: None (occurrence: None)
  Receive Date: 20070214
  Receipt Date: 20070207
  Transmission Date: 20070707
  Serious: Yes (Hospitalization)
  Sender: FDA-Public Use
  Company Number: US-GLAXOSMITHKLINE-A0618477A

PATIENT
  Age: 60 Year
  Sex: Male

DRUGS (7)
  1. BEXXAR [Suspect]
     Indication: LYMPHOMA
     Dates: start: 20010419, end: 20010426
  2. TOPROL-XL [Concomitant]
  3. PLAVIX [Concomitant]
  4. PRAVACHOL [Concomitant]
  5. ASPIRIN [Concomitant]
  6. ALBUTEROL [Concomitant]
  7. MUCINEX [Concomitant]

REACTIONS (4)
  - ACUTE MYELOID LEUKAEMIA [None]
  - LYMPHOMA [None]
  - NEUTROPENIA [None]
  - PNEUMONIA [None]
